FAERS Safety Report 9619933 (Version 1)
Quarter: 2013Q4

REPORT INFORMATION
  Report Type: Report from Study
  Country: US (occurrence: US)
  Receive Date: 20131014
  Receipt Date: 20131014
  Transmission Date: 20140711
  Serious: Yes (Other)
  Sender: FDA-Public Use
  Company Number: US-CELGENEUS-163-20785-06100175

PATIENT
  Sex: 0

DRUGS (7)
  1. THALOMID [Suspect]
     Indication: SARCOMA
     Dosage: 200 MILLIGRAM
     Route: 048
     Dates: start: 200602, end: 200604
  2. COHAPRE [Concomitant]
     Indication: SARCOMA
     Dates: start: 20060207, end: 200604
  3. DOXORUBICIN [Concomitant]
     Indication: SARCOMA
     Dosage: 20MG/M2/DAY CIV X3 DAYS, (DAYS 1-3,22-24,43-45)
     Route: 041
     Dates: start: 20060207, end: 2006
  4. IFOSFAMIDE [Concomitant]
     Indication: SARCOMA
     Dosage: MG/M2/DAY CIV X3 DAYS, DAYS 1-3, 22-24, 43-45)
     Route: 041
     Dates: start: 20060207, end: 2006
  5. DTIC [Concomitant]
     Indication: SARCOMA
     Dosage: 225 MG/M2/DAY CIV X 3 DAYS, ( 1-3, 22-24, 43-45)
     Route: 041
     Dates: start: 20060207, end: 2006
  6. GRANULOCYTE COLONY-STIMULATING FACTOR NOS [Concomitant]
     Indication: SARCOMA
     Dosage: 5 MCG/KG/DAY SQ QD STARTING DAY 5 AND CONTINUING UNTIL ANC}10,000
     Route: 058
     Dates: start: 200602, end: 2006
  7. EBRT [Concomitant]
     Indication: SARCOMA
     Dosage: 22 GY IN 11 FRACTION OVER 15 DAYS, DAYS 7-21, 28-42
     Route: 065
     Dates: start: 200602, end: 2006

REACTIONS (7)
  - Electrocardiogram QT prolonged [Unknown]
  - Syncope [Unknown]
  - Dizziness [Unknown]
  - Fatigue [Unknown]
  - Lymphopenia [Unknown]
  - Nausea [Unknown]
  - Vomiting [Unknown]
